FAERS Safety Report 23772104 (Version 2)
Quarter: 2024Q2

REPORT INFORMATION
  Report Type: Spontaneous
  Country: JP (occurrence: JP)
  Receive Date: 20240423
  Receipt Date: 20240605
  Transmission Date: 20240715
  Serious: Yes (Other)
  Sender: FDA-Public Use
  Company Number: JP-002147023-NVSJ2024JP005000

PATIENT
  Sex: Male

DRUGS (1)
  1. NEORAL [Suspect]
     Active Substance: CYCLOSPORINE
     Indication: Neurodermatitis
     Dosage: 25 MG
     Route: 048
     Dates: end: 202404

REACTIONS (2)
  - Renal impairment [Recovered/Resolved]
  - Off label use [Unknown]
